FAERS Safety Report 11429742 (Version 1)
Quarter: 2015Q3

REPORT INFORMATION
  Report Type: Spontaneous
  Country: US (occurrence: US)
  Receive Date: 20150828
  Receipt Date: 20150828
  Transmission Date: 20151125
  Serious: No
  Sender: FDA-Public Use
  Company Number: US-ROCHE-1219903

PATIENT
  Sex: Female

DRUGS (5)
  1. MINOXIDIL. [Concomitant]
     Active Substance: MINOXIDIL
  2. TRAMADOL. [Concomitant]
     Active Substance: TRAMADOL
     Indication: ARTHRALGIA
     Route: 065
  3. BIOTIN [Concomitant]
     Active Substance: BIOTIN
  4. PEGASYS [Suspect]
     Active Substance: PEGINTERFERON ALFA-2A
     Indication: CHRONIC HEPATITIS C
     Route: 065
     Dates: start: 20130422
  5. RIBAVIRIN. [Suspect]
     Active Substance: RIBAVIRIN
     Indication: CHRONIC HEPATITIS C
     Route: 065
     Dates: start: 20130422

REACTIONS (4)
  - Nausea [Unknown]
  - Pain [Unknown]
  - Chills [Unknown]
  - Feeling abnormal [Unknown]
